FAERS Safety Report 19416678 (Version 3)
Quarter: 2021Q3

REPORT INFORMATION
  Report Type: Spontaneous
  Country: NL (occurrence: FR)
  Receive Date: 20210614
  Receipt Date: 20210713
  Transmission Date: 20211014
  Serious: Yes (Other)
  Sender: FDA-Public Use
  Company Number: FR-FRESENIUS KABI-FK202105988

PATIENT
  Sex: Male
  Weight: 51 kg

DRUGS (6)
  1. LUTETIUM (177LU) DOTATATE [Suspect]
     Active Substance: LUTETIUM OXODOTREOTIDE LU-177
     Indication: NEUROENDOCRINE TUMOUR
     Dosage: 3668 MBQ (HALF DOSE), ONCE/SINGLE
     Route: 042
     Dates: start: 20210406, end: 20210406
  2. LYSINE HYDROCHLORIDE/ARGININE HYDROCHLORIDE [Suspect]
     Active Substance: ARGININE\LYSINE
     Indication: RENAL DISORDER PROPHYLAXIS
     Dosage: 1 L (25/25 G), QD
     Route: 042
     Dates: start: 20210406, end: 20210406
  3. LANREOTIDE ACETATE [Concomitant]
     Active Substance: LANREOTIDE ACETATE
     Indication: PRODUCT USED FOR UNKNOWN INDICATION
     Dosage: 120 MG, EVERY 15 DAYS (SLOW RELEASE)
     Route: 058
  4. AMLODIPINE [Concomitant]
     Active Substance: AMLODIPINE BESYLATE
     Indication: PRODUCT USED FOR UNKNOWN INDICATION
     Dosage: 10 MG, QD (EVERY MORNING)
     Route: 048
  5. ONDANSETRON (MANUFACTURER UNKNOWN) [Suspect]
     Active Substance: ONDANSETRON
     Indication: VESTIBULAR NEURONITIS
     Dosage: 8 MG, QID (32 MG, QD)
     Route: 042
     Dates: start: 20210406, end: 20210406
  6. PANCREATIN [Concomitant]
     Active Substance: PANCRELIPASE
     Indication: PRODUCT USED FOR UNKNOWN INDICATION
     Dosage: 2 X 3500 UL, TID (10500 UL, QD)
     Route: 048

REACTIONS (2)
  - Chronic kidney disease [Not Recovered/Not Resolved]
  - Incorrect dose administered [Recovered/Resolved]

NARRATIVE: CASE EVENT DATE: 20210406
